FAERS Safety Report 13577694 (Version 1)
Quarter: 2017Q2

REPORT INFORMATION
  Report Type: Report from Study
  Country: US (occurrence: US)
  Receive Date: 20170524
  Receipt Date: 20170524
  Transmission Date: 20170830
  Serious: Yes (Death, Hospitalization, Other)
  Sender: FDA-Public Use
  Company Number: US-ASTRAZENECA-2016SF30044

PATIENT
  Age: 23835 Day
  Sex: Female
  Weight: 98.9 kg

DRUGS (14)
  1. MOVANTIK [Suspect]
     Active Substance: NALOXEGOL OXALATE
     Indication: LIVER DISORDER
     Route: 048
     Dates: start: 201611
  2. LEVOTHYROXINE. [Concomitant]
     Active Substance: LEVOTHYROXINE
     Route: 048
  3. LACTULOSE. [Concomitant]
     Active Substance: LACTULOSE
     Dosage: 10GM/15 ML; 30 ML TWO TIMES A DAY
     Route: 048
  4. MOVANTIK [Suspect]
     Active Substance: NALOXEGOL OXALATE
     Indication: ABDOMINAL DISCOMFORT
     Route: 048
     Dates: start: 201611
  5. ALPRAZOLAM. [Concomitant]
     Active Substance: ALPRAZOLAM
     Indication: ANXIETY
     Dosage: 1 TABLET, THREE TIMES A DAY AS REQUIRED
     Route: 048
  6. PRAVASTATIN. [Concomitant]
     Active Substance: PRAVASTATIN
     Route: 048
  7. ZOFRAN [Concomitant]
     Active Substance: ONDANSETRON HYDROCHLORIDE
     Route: 048
  8. ACETAMINOPHEN-HYDROCODONE [Concomitant]
     Dosage: 325/7.5 MG; EVERY SIX HOURS AS NEEDED
     Route: 048
  9. FUROSEMIDE. [Concomitant]
     Active Substance: FUROSEMIDE
     Dosage: DAILY
     Route: 048
  10. SCOPOLAMINE [Concomitant]
     Active Substance: SCOPOLAMINE
     Indication: MOTION SICKNESS
     Dosage: 1 PATCH, EVERY 72 HOURS AS REQUIRED
     Route: 061
  11. VITAMIN B12 [Concomitant]
     Active Substance: CYANOCOBALAMIN
     Route: 030
  12. FERROUS SULFATE. [Concomitant]
     Active Substance: FERROUS SULFATE
     Route: 048
  13. PROMETHAZINE [Concomitant]
     Active Substance: PROMETHAZINE\PROMETHAZINE HYDROCHLORIDE
     Route: 048
  14. SPIRONOLACTONE. [Concomitant]
     Active Substance: SPIRONOLACTONE
     Route: 048

REACTIONS (12)
  - Off label use [Unknown]
  - Asthenia [Unknown]
  - Blood sodium decreased [Unknown]
  - Weight increased [Unknown]
  - Gastrointestinal motility disorder [Unknown]
  - Product use in unapproved indication [Unknown]
  - Confusional state [Unknown]
  - Intestinal obstruction [Unknown]
  - Anaemia [Unknown]
  - Renal failure [Unknown]
  - Internal haemorrhage [Unknown]
  - Death [Fatal]
